FAERS Safety Report 8174950-7 (Version None)
Quarter: 2012Q1

REPORT INFORMATION
  Report Type: 
  Country: None (occurrence: None)
  Receive Date: 20120229
  Receipt Date: 20111028
  Transmission Date: 20120608
  Serious: No
  Sender: FDA-Public Use
  Company Number: US-GLAXOSMITHKLINE-A0951562A

PATIENT
  Sex: Female

DRUGS (10)
  1. UNKNOWN [Concomitant]
  2. FOSAMAX PLUS D [Concomitant]
  3. VITAMIN A [Concomitant]
  4. ANTIOXIDANT [Concomitant]
  5. COENZYME Q10 [Concomitant]
  6. CHROMIUM PICOLINATE [Concomitant]
  7. FISH OIL [Concomitant]
  8. VALTREX [Suspect]
     Indication: GENITAL HERPES
     Dosage: 500MG UNKNOWN
     Route: 048
     Dates: start: 20061201
  9. VITAMIN E [Concomitant]
  10. CALCIUM [Concomitant]

REACTIONS (7)
  - HERPES ZOSTER [None]
  - SKIN BURNING SENSATION [None]
  - ARTHROPOD STING [None]
  - PRURITUS [None]
  - HYPOAESTHESIA [None]
  - ERYTHEMA [None]
  - PARAESTHESIA [None]
